FAERS Safety Report 4619140-7 (Version None)
Quarter: 2005Q2

REPORT INFORMATION
  Report Type: 
  Country: None (occurrence: None)
  Receive Date: 20050321
  Receipt Date: 20040729
  Transmission Date: 20051028
  Serious: Yes (Other)
  Sender: FDA-Public Use
  Company Number: 2004-08-0033

PATIENT
  Age: 48 Year
  Sex: Male
  Weight: 78.0187 kg

DRUGS (3)
  1. PEG-INTRON [Suspect]
     Indication: HEPATITIS C
     Dosage: 120 MCG SUBCUTANEOUS
     Route: 058
     Dates: start: 20040720, end: 20040724
  2. RIBAVIRIN [Suspect]
     Indication: HEPATITIS C
     Dosage: 600 MG BID ORAL
     Route: 048
     Dates: start: 20040720, end: 20040728
  3. TYLENOL [Concomitant]

REACTIONS (5)
  - AGGRESSION [None]
  - MOOD SWINGS [None]
  - OVERDOSE [None]
  - PERSONALITY CHANGE [None]
  - SOMNOLENCE [None]
